FAERS Safety Report 25412853 (Version 1)
Quarter: 2025Q2

REPORT INFORMATION
  Report Type: Spontaneous
  Country: US (occurrence: US)
  Receive Date: 20250609
  Receipt Date: 20250609
  Transmission Date: 20250717
  Serious: No
  Sender: INNOGENIX, LLC
  Company Number: US-Innogenix, LLC-2178342

PATIENT

DRUGS (4)
  1. PROPRANOLOL HYDROCHLORIDE [Suspect]
     Active Substance: PROPRANOLOL HYDROCHLORIDE
     Indication: Inappropriate sinus tachycardia
  2. PROPRANOLOL HYDROCHLORIDE [Suspect]
     Active Substance: PROPRANOLOL HYDROCHLORIDE
     Indication: Postural orthostatic tachycardia syndrome
  3. Midodren [Concomitant]
  4. FLUDROCORTISONE ACETATE [Concomitant]
     Active Substance: FLUDROCORTISONE ACETATE

REACTIONS (3)
  - Malaise [Unknown]
  - Product use in unapproved indication [Unknown]
  - Fatigue [Unknown]
